FAERS Safety Report 15312931 (Version 2)
Quarter: 2018Q3

REPORT INFORMATION
  Report Type: Report from Study
  Country: US (occurrence: US)
  Receive Date: 20180823
  Receipt Date: 20180914
  Transmission Date: 20181010
  Serious: Yes (Hospitalization)
  Sender: FDA-Public Use
  Company Number: US-ACTELION-A-US2018-177839

PATIENT
  Age: 69 Year
  Sex: Female
  Weight: 83.45 kg

DRUGS (6)
  1. ADCIRCA [Concomitant]
     Active Substance: TADALAFIL
  2. TYVASO [Concomitant]
     Active Substance: TREPROSTINIL
  3. OMEPRAZOLE. [Concomitant]
     Active Substance: OMEPRAZOLE
     Dosage: 20 MG, BID
  4. OXYGEN. [Concomitant]
     Active Substance: OXYGEN
     Dosage: 2 L NASAL CANNULA
  5. ANAGRELIDE. [Concomitant]
     Active Substance: ANAGRELIDE HYDROCHLORIDE
     Dosage: 3 MG, BID
  6. OPSUMIT [Suspect]
     Active Substance: MACITENTAN
     Indication: PULMONARY ARTERIAL HYPERTENSION
     Dosage: UNK
     Route: 048
     Dates: end: 201808

REACTIONS (2)
  - Condition aggravated [Recovering/Resolving]
  - Right ventricular failure [Recovering/Resolving]
